FAERS Safety Report 12216815 (Version 2)
Quarter: 2016Q2

REPORT INFORMATION
  Report Type: Spontaneous
  Country: US (occurrence: US)
  Receive Date: 20160329
  Receipt Date: 20160426
  Transmission Date: 20160815
  Serious: No
  Sender: FDA-Public Use
  Company Number: US-PFIZER INC-2016148274

PATIENT
  Age: 79 Year
  Sex: Female

DRUGS (1)
  1. CELECOXIB. [Suspect]
     Active Substance: CELECOXIB
     Dosage: 200 MG, UNK

REACTIONS (5)
  - Urticaria [Unknown]
  - Finger deformity [Unknown]
  - Rash [Unknown]
  - Drug ineffective [Unknown]
  - Pain in extremity [Unknown]
